FAERS Safety Report 5115208-X (Version None)
Quarter: 2006Q3

REPORT INFORMATION
  Report Type: 
  Country: None (occurrence: None)
  Receive Date: 20060926
  Receipt Date: 20060920
  Transmission Date: 20061208
  Serious: Yes (Hospitalization)
  Sender: FDA-Public Use
  Company Number: DE-ROXANE LABORATORIES, INC-2006-DE-05049DE

PATIENT
  Sex: Female
  Weight: 70 kg

DRUGS (2)
  1. LENDORMIN [Suspect]
     Route: 048
  2. LORAZEPAM [Suspect]
     Route: 048

REACTIONS (3)
  - DRUG ABUSER [None]
  - FATIGUE [None]
  - SUICIDE ATTEMPT [None]
